FAERS Safety Report 16831066 (Version 2)
Quarter: 2019Q4

REPORT INFORMATION
  Report Type: Report from Study
  Country: US (occurrence: US)
  Receive Date: 20190920
  Receipt Date: 20191216
  Transmission Date: 20200122
  Serious: Yes (Other)
  Sender: FDA-Public Use
  Company Number: US-ASTELLAS-2019US007337

PATIENT
  Age: 76 Year
  Sex: Male

DRUGS (1)
  1. ENZALUTAMIDE [Suspect]
     Active Substance: ENZALUTAMIDE
     Indication: PROSTATE CANCER
     Route: 048
     Dates: start: 20190103

REACTIONS (4)
  - Prostatic specific antigen increased [Unknown]
  - Epistaxis [Unknown]
  - Ageusia [Unknown]
  - Bladder disorder [Unknown]

NARRATIVE: CASE EVENT DATE: 20190201
